FAERS Safety Report 5712017-5 (Version None)
Quarter: 2008Q2

REPORT INFORMATION
  Report Type: 
  Country: None (occurrence: None)
  Receive Date: 20080417
  Receipt Date: 20080401
  Transmission Date: 20081010
  Serious: Yes (Other)
  Sender: FDA-Public Use
  Company Number: S08-FRA-01379-01

PATIENT
  Age: 80 Year
  Sex: Female

DRUGS (2)
  1. MEMANTINE HCL [Suspect]
     Indication: DEMENTIA ALZHEIMER'S TYPE
     Dosage: 20 MG QD PO
     Route: 048
     Dates: start: 20080101, end: 20080301
  2. GALANTAMINE HYDROBROMIDE [Concomitant]

REACTIONS (1)
  - PHLEBITIS DEEP [None]
